FAERS Safety Report 8544413-5 (Version None)
Quarter: 2012Q3

REPORT INFORMATION
  Report Type: 
  Country: None (occurrence: None)
  Receive Date: 20120719
  Receipt Date: 20120719
  Transmission Date: 20120928
  Serious: Yes (Other)
  Sender: FDA-Public Use
  Company Number: None

PATIENT
  Sex: Female

DRUGS (1)
  1. BUSPIRONE HCL [Suspect]
     Indication: ANXIETY
     Dosage: 5 MG ONCE A DAY PO
     Route: 048
     Dates: start: 20120628, end: 20120718

REACTIONS (2)
  - ARTHRALGIA [None]
  - MYALGIA [None]
